FAERS Safety Report 9207660 (Version 1)
Quarter: 2013Q2

REPORT INFORMATION
  Report Type: Spontaneous
  Country: US (occurrence: None)
  Receive Date: 20130402
  Receipt Date: 20130402
  Transmission Date: 20140414
  Serious: Yes (Life-Threatening, Other)
  Sender: FDA-Public Use
  Company Number: None

PATIENT
  Age: 62 Year
  Sex: Male
  Weight: 77.7 kg

DRUGS (1)
  1. FLOMAX [Suspect]
     Indication: URINARY RETENTION
     Dosage: 0.4 MG BID

REACTIONS (2)
  - Product substitution issue [None]
  - Therapeutic response decreased [None]
